FAERS Safety Report 8409478-X (Version None)
Quarter: 2012Q2

REPORT INFORMATION
  Report Type: 
  Country: None (occurrence: None)
  Receive Date: 20120323
  Receipt Date: 20111220
  Transmission Date: 20120825
  Serious: Yes (Other)
  Sender: FDA-Public Use
  Company Number: 163-21880-11122739

PATIENT
  Age: 73 Year
  Sex: Male

DRUGS (3)
  1. REVLIMID [Suspect]
     Indication: MYELODYSPLASTIC SYNDROME
     Dosage: 10 MG, 1 IN 1 D, PO : 5-10MG, DAILY, PO : 5 MG, 1 IN 1 D, PO
     Route: 048
     Dates: start: 20090701
  2. REVLIMID [Suspect]
     Indication: MYELODYSPLASTIC SYNDROME
     Dosage: 10 MG, 1 IN 1 D, PO : 5-10MG, DAILY, PO : 5 MG, 1 IN 1 D, PO
     Route: 048
     Dates: start: 20090701
  3. REVLIMID [Suspect]
     Indication: MYELODYSPLASTIC SYNDROME
     Dosage: 10 MG, 1 IN 1 D, PO : 5-10MG, DAILY, PO : 5 MG, 1 IN 1 D, PO
     Route: 048
     Dates: start: 20100301

REACTIONS (1)
  - MYELODYSPLASTIC SYNDROME [None]
